FAERS Safety Report 15352089 (Version 1)
Quarter: 2018Q3

REPORT INFORMATION
  Report Type: Spontaneous
  Country: US (occurrence: US)
  Receive Date: 20180905
  Receipt Date: 20180905
  Transmission Date: 20181010
  Serious: Yes (Other)
  Sender: FDA-Public Use
  Company Number: US-AMGEN-USASP2018121062

PATIENT
  Age: 83 Year
  Sex: Female

DRUGS (2)
  1. CALCIUM [Suspect]
     Active Substance: CALCIUM
     Indication: OSTEOPOROSIS POSTMENOPAUSAL
     Dosage: UNK UNK, TID
     Route: 065
  2. PROLIA [Suspect]
     Active Substance: DENOSUMAB
     Indication: OSTEOPOROSIS POSTMENOPAUSAL
     Dosage: UNK
     Route: 065

REACTIONS (2)
  - Nephrolithiasis [Unknown]
  - Urinary tract infection [Unknown]
